FAERS Safety Report 6858644-3 (Version None)
Quarter: 2010Q3

REPORT INFORMATION
  Report Type: 
  Country: None (occurrence: None)
  Receive Date: 20100719
  Receipt Date: 20080208
  Transmission Date: 20110219
  Serious: No
  Sender: FDA-Public Use
  Company Number: US-PFIZER INC-2008014297

PATIENT
  Age: 58 Year
  Sex: Male

DRUGS (7)
  1. CHANTIX [Suspect]
     Indication: SMOKING CESSATION THERAPY
  2. OXYCODONE HCL [Concomitant]
  3. BISACODYL [Concomitant]
  4. PARACETAMOL [Concomitant]
  5. LIDODERM [Concomitant]
  6. LORAZEPAM [Concomitant]
  7. PRAVASTATIN SODIUM [Concomitant]

REACTIONS (2)
  - DEPRESSION [None]
  - NAUSEA [None]
